FAERS Safety Report 4579177-3 (Version None)
Quarter: 2005Q1

REPORT INFORMATION
  Report Type: 
  Country: None (occurrence: None)
  Receive Date: 20050208
  Receipt Date: 20050208
  Transmission Date: 20050727
  Serious: Yes (Other)
  Sender: FDA-Public Use
  Company Number: None

PATIENT
  Age: 65 Year
  Sex: Female

DRUGS (1)
  1. ENBREL [Suspect]
     Dosage: 50MG  QW   SUBCUTANEOUS
     Route: 058
     Dates: start: 20050112, end: 20050207

REACTIONS (2)
  - INJECTION SITE DISCOMFORT [None]
  - MEDICAL DEVICE DISCOMFORT [None]
